FAERS Safety Report 4635854-7 (Version None)
Quarter: 2005Q2

REPORT INFORMATION
  Report Type: 
  Country: None (occurrence: None)
  Receive Date: 20050415
  Receipt Date: 20050405
  Transmission Date: 20051028
  Serious: Yes (Hospitalization)
  Sender: FDA-Public Use
  Company Number: 200511221FR

PATIENT
  Age: 58 Year
  Sex: Female
  Weight: 43 kg

DRUGS (4)
  1. TAXOTERE [Suspect]
     Indication: BRONCHIAL CARCINOMA
     Route: 042
     Dates: start: 20041214, end: 20050204
  2. UNKNOWN DRUG [Suspect]
     Indication: BRONCHIAL CARCINOMA
     Route: 048
     Dates: start: 20041215, end: 20050206
  3. ZOMETA [Suspect]
     Route: 042
     Dates: start: 20050204
  4. STABLON [Concomitant]
     Indication: DEPRESSION
     Route: 048

REACTIONS (7)
  - BLOOD CALCIUM DECREASED [None]
  - HAEMOGLOBIN DECREASED [None]
  - PARAESTHESIA [None]
  - PERIPHERAL ISCHAEMIA [None]
  - PLATELET COUNT INCREASED [None]
  - PYREXIA [None]
  - SKIN NECROSIS [None]
